FAERS Safety Report 5125665-0 (Version None)
Quarter: 2006Q4

REPORT INFORMATION
  Report Type: 
  Country: None (occurrence: None)
  Receive Date: 20061006
  Receipt Date: 20061002
  Transmission Date: 20070319
  Serious: Yes (Other)
  Sender: FDA-Public Use
  Company Number: 148021USA

PATIENT
  Age: 86 Year
  Sex: Male

DRUGS (5)
  1. DOCUSATE [Suspect]
     Indication: LAXATIVE SUPPORTIVE CARE
     Dosage: 200 MG (100 MG, 2 IN 1 D), ORAL
     Route: 048
     Dates: start: 20060823, end: 20060823
  2. LABETALOL HCL [Concomitant]
  3. CITALOPRAM HYDROBROMIDE [Concomitant]
  4. LATANOPROST [Concomitant]
  5. LEVETIRACETAM [Concomitant]

REACTIONS (3)
  - DYSARTHRIA [None]
  - FEELING DRUNK [None]
  - TRANSIENT ISCHAEMIC ATTACK [None]
